FAERS Safety Report 14547708 (Version 1)
Quarter: 2018Q1

REPORT INFORMATION
  Report Type: Spontaneous
  Country: US (occurrence: US)
  Receive Date: 20180219
  Receipt Date: 20180219
  Transmission Date: 20180509
  Serious: Yes (Other)
  Sender: FDA-Public Use
  Company Number: US-BAYER-2018-026709

PATIENT
  Sex: Male

DRUGS (1)
  1. KOGENATE FS [Suspect]
     Active Substance: ANTIHEMOPHILIC FACTOR, HUMAN RECOMBINANT
     Indication: FACTOR VIII DEFICIENCY
     Dosage: 2000 IU, TIW AND DAILY PRN
     Route: 042
     Dates: start: 20171017

REACTIONS (2)
  - Ligament sprain [Unknown]
  - Haemarthrosis [Not Recovered/Not Resolved]
